FAERS Safety Report 6920183-9 (Version None)
Quarter: 2010Q3

REPORT INFORMATION
  Report Type: 
  Country: None (occurrence: None)
  Receive Date: 20100809
  Receipt Date: 20100728
  Transmission Date: 20110219
  Serious: No
  Sender: FDA-Public Use
  Company Number: 2010SP013246

PATIENT
  Age: 63 Year
  Sex: Female
  Weight: 58 kg

DRUGS (7)
  1. REBETOL [Suspect]
     Indication: HEPATITIS C
     Dosage: 600 MG; PO
     Route: 048
     Dates: start: 20100203, end: 20100302
  2. INTERFERON [Suspect]
     Indication: HEPATITIS C
     Dosage: IV
     Route: 042
     Dates: start: 20100203
  3. PRAVASTAN [Concomitant]
  4. URSO 250 [Concomitant]
  5. GASMOTIN [Concomitant]
  6. DOMPERIDONE [Concomitant]
  7. PANCREAZE [Concomitant]

REACTIONS (1)
  - ULCERATIVE KERATITIS [None]
